FAERS Safety Report 8450274-5 (Version None)
Quarter: 2012Q2

REPORT INFORMATION
  Report Type: 
  Country: None (occurrence: None)
  Receive Date: 20120614
  Receipt Date: 20120614
  Transmission Date: 20120825
  Serious: Yes (Disabling, Other)
  Sender: FDA-Public Use
  Company Number: None

PATIENT
  Age: 46 Year
  Sex: Male
  Weight: 124.7392 kg

DRUGS (3)
  1. ABILIFY [Suspect]
     Indication: BIPOLAR DISORDER
     Dosage: ONE A DAY
     Dates: start: 20050319, end: 20110712
  2. ABILIFY [Suspect]
     Indication: BORDERLINE PERSONALITY DISORDER
     Dosage: ONE A DAY
     Dates: start: 20050319, end: 20110712
  3. ABILLIFY [Concomitant]

REACTIONS (3)
  - TREMOR [None]
  - RENAL DISORDER [None]
  - WEIGHT INCREASED [None]
